FAERS Safety Report 5171012-8 (Version None)
Quarter: 2006Q4

REPORT INFORMATION
  Report Type: 
  Country: None (occurrence: None)
  Receive Date: 20061213
  Receipt Date: 20061203
  Transmission Date: 20070319
  Serious: Yes (Other)
  Sender: FDA-Public Use
  Company Number: BR-JNJFOC-20061201754

PATIENT
  Age: 72 Year
  Sex: Male

DRUGS (3)
  1. ULTRACET [Suspect]
     Indication: FALL
  2. PRAVASTATIN [Concomitant]
     Route: 048
  3. PROPAFENONE HCL [Concomitant]
     Route: 048

REACTIONS (5)
  - ABDOMINAL PAIN [None]
  - CONJUNCTIVAL HYPERAEMIA [None]
  - DYSPHAGIA [None]
  - FACE OEDEMA [None]
  - FAECES DISCOLOURED [None]
